FAERS Safety Report 5985187-1 (Version None)
Quarter: 2008Q4

REPORT INFORMATION
  Report Type: 
  Country: None (occurrence: None)
  Receive Date: 20081203
  Receipt Date: 20081119
  Transmission Date: 20090506
  Serious: Yes (Other)
  Sender: FDA-Public Use
  Company Number: 232079K08USA

PATIENT
  Age: 36 Year
  Sex: Female
  Weight: 110 kg

DRUGS (11)
  1. REBIF [Suspect]
     Indication: MULTIPLE SCLEROSIS
     Dosage: 44 MCG, 3 IN 1 WEEKS, SUBCUTANEOUS
     Route: 058
     Dates: start: 20051109
  2. HYDROCHLOROTHIAZIDE [Suspect]
     Indication: HYPERTENSION
  3. STEROIDS (CORTICOSTEROIDS) [Suspect]
     Dates: start: 20080501
  4. VERAPAMIL (VERAPAMIL/00014301/) [Concomitant]
  5. LIPITOR [Concomitant]
  6. NEXIUM [Concomitant]
  7. ALLEGRA [Concomitant]
  8. SINGULAIR (MONTELUKAST/01362601/) [Concomitant]
  9. FLONASE [Concomitant]
  10. TOPAMAX [Concomitant]
  11. TRAMADOL HCL [Concomitant]

REACTIONS (1)
  - TYPE 2 DIABETES MELLITUS [None]
